FAERS Safety Report 5171103-1 (Version None)
Quarter: 2006Q4

REPORT INFORMATION
  Report Type: 
  Country: None (occurrence: None)
  Receive Date: 20061213
  Receipt Date: 20061206
  Transmission Date: 20070319
  Serious: Yes (Hospitalization)
  Sender: FDA-Public Use
  Company Number: GB-GLAXOSMITHKLINE-B0450176A

PATIENT
  Age: 84 Year

DRUGS (7)
  1. AMOXICILLIN + CLAVULANATE POTASSIUM [Suspect]
     Indication: URINARY TRACT INFECTION
     Route: 048
     Dates: start: 20061109, end: 20061116
  2. BENDROFLUMETHIAZIDE [Concomitant]
     Dosage: 2.5MG PER DAY
     Route: 048
  3. CITALOPRAM HYDROBROMIDE [Concomitant]
     Dosage: 10MG PER DAY
  4. ACETAMINOPHEN W/ CODEINE [Concomitant]
     Route: 048
  5. DOXAZOSIN MESYLATE [Concomitant]
     Dosage: 2MG PER DAY
     Route: 048
  6. ENALAPRIL MALEATE [Concomitant]
     Dosage: 20MG TWICE PER DAY
  7. RISEDRONATE SODIUM [Concomitant]
     Dosage: 35MG WEEKLY

REACTIONS (3)
  - HEPATOTOXICITY [None]
  - JAUNDICE [None]
  - LIVER FUNCTION TEST ABNORMAL [None]
